FAERS Safety Report 9774635 (Version 3)
Quarter: 2014Q1

REPORT INFORMATION
  Report Type: Report from Study
  Country: IT (occurrence: IT)
  Receive Date: 20131220
  Receipt Date: 20140129
  Transmission Date: 20141002
  Serious: Yes (Death, Hospitalization)
  Sender: FDA-Public Use
  Company Number: IT-ASTELLAS-2013US013071

PATIENT
  Age: 70 Year
  Sex: Male

DRUGS (17)
  1. PLACEBO [Suspect]
     Indication: NON-SMALL CELL LUNG CANCER
     Dosage: UID/QD
     Route: 048
     Dates: start: 20130820, end: 20131007
  2. ERLOTINIB TABLET [Suspect]
     Indication: NON-SMALL CELL LUNG CANCER
     Dosage: 150 MG, UID/QD
     Route: 048
     Dates: start: 20131008, end: 20131208
  3. CLENIL                             /00212602/ [Concomitant]
     Indication: COUGH
     Dosage: UNK
     Route: 065
     Dates: start: 2008
  4. NORVASC [Concomitant]
     Indication: HYPERTENSION
     Dosage: UNK
     Route: 065
     Dates: start: 1996
  5. ANTRA                              /00661201/ [Concomitant]
     Indication: PROPHYLAXIS
     Dosage: UNK
     Route: 065
     Dates: start: 2012
  6. SIMVASTATIN [Concomitant]
     Indication: HYPERCHOLESTEROLAEMIA
     Dosage: UNK
     Route: 065
     Dates: start: 1996
  7. GLUCOPHAGE [Concomitant]
     Indication: DIABETES MELLITUS
     Dosage: UNK
     Route: 065
     Dates: start: 1996
  8. TICLOPIDINE [Concomitant]
     Indication: THROMBOSIS
     Dosage: UNK
     Route: 065
     Dates: start: 2008
  9. CLENIL                             /00212602/ [Concomitant]
     Indication: COUGH
     Dosage: UNK
     Route: 065
  10. CIPROXIN                           /00697201/ [Concomitant]
     Indication: COUGH
     Dosage: UNK
     Route: 065
     Dates: start: 20131206, end: 20131210
  11. MEGACE [Concomitant]
     Indication: DECREASED APPETITE
     Dosage: UNK
     Route: 065
     Dates: start: 20131112
  12. TALOFEN [Concomitant]
     Indication: HICCUPS
     Dosage: UNK
     Route: 065
     Dates: start: 20130820
  13. MEDROL                             /00049601/ [Concomitant]
     Indication: COUGH
     Dosage: UNK
     Route: 065
     Dates: start: 20131105
  14. PLASIL                             /00041901/ [Concomitant]
     Indication: NAUSEA
     Dosage: UNK
     Route: 065
     Dates: start: 20130820
  15. OXYCONTIN [Concomitant]
     Indication: PAIN
     Dosage: UNK
     Route: 065
     Dates: start: 20130820
  16. MS CONTIN [Concomitant]
     Indication: PAIN
     Dosage: UNK
     Route: 065
     Dates: start: 20130820
  17. LYRICA [Concomitant]
     Indication: PROPHYLAXIS
     Dosage: UNK
     Route: 065
     Dates: start: 20130820

REACTIONS (1)
  - Pleural effusion [Fatal]
